FAERS Safety Report 8396627-5 (Version None)
Quarter: 2012Q2

REPORT INFORMATION
  Report Type: 
  Country: None (occurrence: None)
  Receive Date: 20120530
  Receipt Date: 20120523
  Transmission Date: 20120825
  Serious: Yes (Other)
  Sender: FDA-Public Use
  Company Number: FR-PFIZER INC-2011270117

PATIENT
  Age: 42 Year
  Sex: Male
  Weight: 82 kg

DRUGS (5)
  1. PREDNISOLONE [Concomitant]
     Dosage: 60 MG, 1X/DAY IN 2 INTAKES
     Route: 048
  2. CRIZOTINIB [Suspect]
     Indication: LUNG ADENOCARCINOMA METASTATIC
     Dosage: 250 MG, 2X/DAY
     Route: 048
     Dates: start: 20110607, end: 20111103
  3. LANSOPRAZOLE [Concomitant]
     Indication: ABDOMINAL PAIN UPPER
     Dosage: 30 MG, 1X/DAY
     Route: 048
  4. CRIZOTINIB [Suspect]
     Dosage: 200 MG, 2X/DAY
     Route: 048
     Dates: start: 20111210
  5. PREDNISOLONE [Concomitant]
     Indication: BRAIN OEDEMA
     Dosage: DAILY DOSE OF 80 (NO UNIT), CORRESPONDING 3 DF IN THE MORNING, 1 DF AT MIDDAY

REACTIONS (1)
  - CYTOLYTIC HEPATITIS [None]
